FAERS Safety Report 6875609-6 (Version None)
Quarter: 2010Q3

REPORT INFORMATION
  Report Type: 
  Country: None (occurrence: None)
  Receive Date: 20100727
  Receipt Date: 20100714
  Transmission Date: 20110219
  Serious: Yes (Other)
  Sender: FDA-Public Use
  Company Number: AU-JNJFOC-20100707691

PATIENT
  Sex: Male

DRUGS (2)
  1. DITROPAN [Suspect]
     Indication: PRODUCT USED FOR UNKNOWN INDICATION
     Route: 065
  2. DITROPAN [Suspect]
     Route: 065

REACTIONS (3)
  - DRY MOUTH [None]
  - HEART RATE INCREASED [None]
  - PANIC ATTACK [None]
